FAERS Safety Report 4883240-7 (Version None)
Quarter: 2006Q1

REPORT INFORMATION
  Report Type: 
  Country: None (occurrence: None)
  Receive Date: 20060117
  Receipt Date: 20060117
  Transmission Date: 20060701
  Serious: No
  Sender: FDA-Public Use
  Company Number: None

PATIENT
  Age: 73 Year
  Sex: Male

DRUGS (1)
  1. VIAGRA [Suspect]
     Indication: OPTIC ISCHAEMIC NEUROPATHY
     Dosage: 50MG ONE TABLET TOTAL PO
     Route: 048
     Dates: start: 20051231, end: 20051231

REACTIONS (1)
  - OPTIC ISCHAEMIC NEUROPATHY [None]
